FAERS Safety Report 10883855 (Version 1)
Quarter: 2015Q1

REPORT INFORMATION
  Report Type: Spontaneous
  Country: SE (occurrence: SE)
  Receive Date: 20150304
  Receipt Date: 20150304
  Transmission Date: 20150721
  Serious: Yes (Other)
  Sender: FDA-Public Use
  Company Number: SE-ROCHE-1547656

PATIENT
  Sex: Female

DRUGS (3)
  1. PEGASYS [Suspect]
     Active Substance: PEGINTERFERON ALFA-2A
     Indication: HEPATITIS C
     Route: 058
     Dates: start: 20111020, end: 20120416
  2. INCIVO [Suspect]
     Active Substance: TELAPREVIR
     Indication: HEPATITIS C
     Dosage: FILMDRAGERAD TABLETT
     Route: 048
     Dates: start: 20111020, end: 20120416
  3. COPEGUS [Suspect]
     Active Substance: RIBAVIRIN
     Indication: HEPATITIS C
     Dosage: FILMDRAGERAD TABLETT
     Route: 048
     Dates: start: 20111020, end: 20120416

REACTIONS (4)
  - Weight decreased [Not Recovered/Not Resolved]
  - Alopecia [Not Recovered/Not Resolved]
  - Tooth infection [Not Recovered/Not Resolved]
  - Breast atrophy [Not Recovered/Not Resolved]
